FAERS Safety Report 25968479 (Version 1)
Quarter: 2025Q4

REPORT INFORMATION
  Report Type: Spontaneous
  Country: US (occurrence: US)
  Receive Date: 20251028
  Receipt Date: 20251028
  Transmission Date: 20260117
  Serious: No
  Sender: ABBVIE
  Company Number: US-ABBVIE-6517471

PATIENT
  Age: 6 Year
  Sex: Female

DRUGS (2)
  1. LINACLOTIDE [Suspect]
     Active Substance: LINACLOTIDE
     Indication: Constipation
     Route: 065
  2. LINACLOTIDE [Suspect]
     Active Substance: LINACLOTIDE
     Indication: Constipation
     Dosage: DOSE INCREASED
     Route: 065

REACTIONS (4)
  - Off label use [Unknown]
  - Drug ineffective [Unknown]
  - Product physical issue [Unknown]
  - Off label use [Unknown]
